FAERS Safety Report 25906503 (Version 1)
Quarter: 2025Q4

REPORT INFORMATION
  Report Type: Spontaneous
  Country: US (occurrence: US)
  Receive Date: 20251010
  Receipt Date: 20251010
  Transmission Date: 20260117
  Serious: Yes (Disabling, Other)
  Sender: AMNEAL
  Company Number: US-AMNEAL PHARMACEUTICALS-2025-AMRX-03914

PATIENT

DRUGS (1)
  1. SULFAMETHOXAZOLE AND TRIMETHOPRIM [Suspect]
     Active Substance: SULFAMETHOXAZOLE\TRIMETHOPRIM
     Indication: Cystitis
     Dosage: UNK
     Route: 048

REACTIONS (13)
  - Sepsis [Unknown]
  - Rectal haemorrhage [Unknown]
  - Mental disability [Unknown]
  - Physical disability [Unknown]
  - Haemoptysis [Unknown]
  - Somnolence [Unknown]
  - Productive cough [Unknown]
  - Gait disturbance [Unknown]
  - Weight decreased [Unknown]
  - Dyspnoea [Unknown]
  - Fatigue [Unknown]
  - Asthenia [Unknown]
  - Recalled product administered [Unknown]
